FAERS Safety Report 21399734 (Version 1)
Quarter: 2022Q4

REPORT INFORMATION
  Report Type: Spontaneous
  Country: BR (occurrence: BR)
  Receive Date: 20221001
  Receipt Date: 20221001
  Transmission Date: 20230113
  Serious: Yes (Other)
  Sender: FDA-Public Use
  Company Number: BR-TAKEDA-2022TUS013751

PATIENT
  Sex: Female
  Weight: 70 kg

DRUGS (4)
  1. LISDEXAMFETAMINE DIMESYLATE [Suspect]
     Active Substance: LISDEXAMFETAMINE DIMESYLATE
     Indication: Attention deficit hyperactivity disorder
     Dosage: UNK
     Route: 065
     Dates: start: 202109
  2. LISDEXAMFETAMINE DIMESYLATE [Suspect]
     Active Substance: LISDEXAMFETAMINE DIMESYLATE
     Indication: Attention deficit hyperactivity disorder
     Dosage: 1 CAPSULE, IN THE MORNING
     Route: 048
     Dates: start: 20220224, end: 20220225
  3. DESVENLAFAXINE [Concomitant]
     Active Substance: DESVENLAFAXINE
     Indication: Anxiety disorder
     Dosage: 150 MILLIGRAM
     Route: 065
  4. RISPERIDONE [Concomitant]
     Active Substance: RISPERIDONE
     Indication: Anxiety disorder
     Dosage: 0.5 MILLIGRAM
     Route: 065

REACTIONS (12)
  - Disturbance in attention [Unknown]
  - Nausea [Recovered/Resolved]
  - Dry mouth [Unknown]
  - Illness [Recovered/Resolved]
  - Somnolence [Recovered/Resolved]
  - Rebound effect [Recovered/Resolved]
  - Amenorrhoea [Unknown]
  - Discomfort [Unknown]
  - Adverse drug reaction [Unknown]
  - Drug ineffective [Unknown]
  - Product availability issue [Unknown]
  - Off label use [Unknown]
